FAERS Safety Report 8190955-4 (Version None)
Quarter: 2012Q1

REPORT INFORMATION
  Report Type: 
  Country: None (occurrence: None)
  Receive Date: 20120307
  Receipt Date: 20120227
  Transmission Date: 20120608
  Serious: Yes (Death, Hospitalization, Other)
  Sender: FDA-Public Use
  Company Number: US-ACTELION-A-NJ2012-60096

PATIENT

DRUGS (10)
  1. SINGULAIR [Concomitant]
  2. TRACLEER [Suspect]
     Indication: PULMONARY ARTERIAL HYPERTENSION
     Dosage: 125 MG, BID
     Route: 048
     Dates: start: 20041201
  3. REMODULIN [Concomitant]
  4. ZYRTEC [Concomitant]
  5. WARFARIN SODIUM [Concomitant]
  6. ASMANEX TWISTHALER [Concomitant]
  7. PROTONIX [Concomitant]
  8. SILDENAFIL [Concomitant]
  9. OXYGEN [Concomitant]
  10. CALCIUM WITH VITAMIN D [Concomitant]

REACTIONS (10)
  - NAUSEA [None]
  - CARDIAC FAILURE [None]
  - DECREASED APPETITE [None]
  - HEPATOSPLENOMEGALY [None]
  - ABDOMINAL PAIN [None]
  - VOMITING [None]
  - PORTAL HYPERTENSION [None]
  - HEPATIC CONGESTION [None]
  - DEATH [None]
  - HYPERTENSION [None]
